FAERS Safety Report 4433308-4 (Version None)
Quarter: 2004Q3

REPORT INFORMATION
  Report Type: 
  Country: None (occurrence: None)
  Receive Date: 20040819
  Receipt Date: 20040805
  Transmission Date: 20050211
  Serious: No
  Sender: FDA-Public Use
  Company Number: CART-10362

PATIENT
  Age: 16 Year
  Sex: Male

DRUGS (1)
  1. CARTICEL [Suspect]
     Indication: ARTHROPATHY
     Dosage: 1 NA ONCE IS
     Dates: start: 20010305, end: 20010305

REACTIONS (4)
  - ASEPTIC NECROSIS BONE [None]
  - CLAVICLE FRACTURE [None]
  - GRAFT COMPLICATION [None]
  - THERAPEUTIC PRODUCT INEFFECTIVE [None]
